FAERS Safety Report 7940390-6 (Version None)
Quarter: 2011Q4

REPORT INFORMATION
  Report Type: 
  Country: None (occurrence: None)
  Receive Date: 20111127
  Receipt Date: 20111115
  Transmission Date: 20120403
  Serious: Yes (Other)
  Sender: FDA-Public Use
  Company Number: GB-AMGEN-GBRSP2011061291

PATIENT
  Age: 71 Year
  Sex: Female
  Weight: 52.6 kg

DRUGS (7)
  1. ETORICOXIB [Concomitant]
     Dosage: UNK
  2. ORAMORPH SR [Concomitant]
     Dosage: UNK
  3. LANSOPRAZOLE [Concomitant]
     Dosage: UNK
  4. METHOTREXATE [Concomitant]
     Dosage: UNK
  5. LEVOTHYROXINE SODIUM [Concomitant]
     Dosage: UNK
  6. DURAGESIC-100 [Concomitant]
     Dosage: UNK
  7. ENBREL [Suspect]
     Indication: RHEUMATOID ARTHRITIS
     Dosage: 50 MG, UNK
     Route: 058
     Dates: start: 20111013, end: 20111015

REACTIONS (3)
  - OEDEMA PERIPHERAL [None]
  - LIP SWELLING [None]
  - HYPERSENSITIVITY [None]
